FAERS Safety Report 5089539-6 (Version None)
Quarter: 2006Q3

REPORT INFORMATION
  Report Type: 
  Country: None (occurrence: None)
  Receive Date: 20060822
  Receipt Date: 20060804
  Transmission Date: 20061208
  Serious: Yes (Other)
  Sender: FDA-Public Use
  Company Number: US200608001002

PATIENT
  Sex: Female

DRUGS (3)
  1. HUMALOG PEN [Suspect]
     Indication: DIABETES MELLITUS
     Dates: start: 20050201
  2. HUMALOG PEN (HUMALOG PEN) [Concomitant]
  3. LANTUS [Concomitant]

REACTIONS (6)
  - BLINDNESS [None]
  - EYE DEGENERATIVE DISORDER [None]
  - EYE HAEMORRHAGE [None]
  - GLAUCOMA [None]
  - MACULAR DEGENERATION [None]
  - PHARMACEUTICAL PRODUCT COMPLAINT [None]
